FAERS Safety Report 4288899-3 (Version None)
Quarter: 2004Q1

REPORT INFORMATION
  Report Type: 
  Country: None (occurrence: None)
  Receive Date: 20040209
  Receipt Date: 20040209
  Transmission Date: 20041129
  Serious: Yes (Life-Threatening, Other)
  Sender: FDA-Public Use
  Company Number: None

PATIENT
  Age: 15 Year
  Sex: Female
  Weight: 40.8237 kg

DRUGS (2)
  1. PAXIL [Suspect]
     Indication: ANXIETY DISORDER
     Dosage: 10 MG 2 X DAILY ORAL
     Route: 048
     Dates: start: 20020301, end: 20031030
  2. PAXIL [Suspect]
     Indication: BIPOLAR II DISORDER
     Dosage: 10 MG 2 X DAILY ORAL
     Route: 048
     Dates: start: 20020301, end: 20031030

REACTIONS (5)
  - AGITATION [None]
  - BIPOLAR DISORDER [None]
  - CONDITION AGGRAVATED [None]
  - IMPULSE-CONTROL DISORDER [None]
  - SUICIDAL IDEATION [None]
